FAERS Safety Report 13528206 (Version 1)
Quarter: 2017Q2

REPORT INFORMATION
  Report Type: Spontaneous
  Country: US (occurrence: US)
  Receive Date: 20170509
  Receipt Date: 20170509
  Transmission Date: 20170830
  Serious: No
  Sender: FDA-Public Use
  Company Number: US-ELI_LILLY_AND_COMPANY-US201704011315

PATIENT
  Sex: Female

DRUGS (3)
  1. CALCIUM                            /00060701/ [Concomitant]
     Active Substance: CALCIUM
  2. COLECALCIFEROL [Concomitant]
     Active Substance: CHOLECALCIFEROL
  3. FORTEO [Suspect]
     Active Substance: TERIPARATIDE
     Indication: BONE DISORDER
     Dosage: 20 UG, UNKNOWN
     Route: 058

REACTIONS (3)
  - Dizziness [Recovered/Resolved]
  - Eye disorder [Recovered/Resolved]
  - Palpitations [Recovered/Resolved]
